FAERS Safety Report 11980913 (Version 2)
Quarter: 2016Q1

REPORT INFORMATION
  Report Type: Spontaneous
  Country: US (occurrence: US)
  Receive Date: 20160129
  Receipt Date: 20160215
  Transmission Date: 20160526
  Serious: No
  Sender: FDA-Public Use
  Company Number: US-009507513-1601GBR004026

PATIENT
  Age: 76 Year

DRUGS (1)
  1. PROPECIA [Suspect]
     Active Substance: FINASTERIDE
     Indication: ALOPECIA
     Dosage: 1 MG, UNK
     Route: 048

REACTIONS (4)
  - Alopecia [Unknown]
  - Depression [Unknown]
  - Adverse event [Unknown]
  - Frustration tolerance decreased [Unknown]
